FAERS Safety Report 8597626-0 (Version None)
Quarter: 2012Q3

REPORT INFORMATION
  Report Type: 
  Country: None (occurrence: None)
  Receive Date: 20120816
  Receipt Date: 20120808
  Transmission Date: 20120928
  Serious: Yes (Hospitalization, Other)
  Sender: FDA-Public Use
  Company Number: EC-JNJFOC-20120305947

PATIENT
  Sex: Male

DRUGS (2)
  1. BRONCOTOSIL [Concomitant]
     Indication: RESPIRATORY DISORDER
     Route: 065
  2. LISTERINE COOLMINT [Suspect]
     Indication: PRODUCT USED FOR UNKNOWN INDICATION
     Route: 048
     Dates: end: 20120305

REACTIONS (3)
  - PHARYNGITIS [None]
  - TONGUE HAEMORRHAGE [None]
  - GLOSSITIS [None]
